FAERS Safety Report 6460307-3 (Version None)
Quarter: 2009Q4

REPORT INFORMATION
  Report Type: 
  Country: None (occurrence: None)
  Receive Date: 20091130
  Receipt Date: 20091116
  Transmission Date: 20100525
  Serious: Yes (Hospitalization)
  Sender: FDA-Public Use
  Company Number: GB-CELGENEUS-167-20484-09111492

PATIENT
  Sex: Female

DRUGS (11)
  1. INNOHEP [Suspect]
     Route: 064
  2. STEMETIL [Suspect]
     Route: 064
  3. DALTEPARIN [Concomitant]
     Route: 064
  4. FOLIC ACID [Concomitant]
     Route: 064
  5. FERROUS SULFATE TAB [Concomitant]
     Route: 064
  6. PARACETAMOL [Concomitant]
     Route: 064
  7. CODEINE PHOSPHATE [Concomitant]
     Route: 064
  8. RANITIDINE [Concomitant]
     Route: 064
  9. BETAMETHASONE [Concomitant]
     Route: 064
  10. DIAMORPHINE [Concomitant]
     Route: 064
  11. OXYTOCIN [Concomitant]
     Route: 064

REACTIONS (2)
  - DRUG EXPOSURE DURING PREGNANCY [None]
  - PREMATURE BABY [None]
